FAERS Safety Report 6173348-0 (Version None)
Quarter: 2009Q2

REPORT INFORMATION
  Report Type: 
  Country: None (occurrence: None)
  Receive Date: 20090430
  Receipt Date: 20090421
  Transmission Date: 20091009
  Serious: Yes (Other)
  Sender: FDA-Public Use
  Company Number: US-ELI_LILLY_AND_COMPANY-US200904004796

PATIENT
  Age: 31 Year
  Sex: Female

DRUGS (4)
  1. STRATTERA [Suspect]
     Indication: ATTENTION DEFICIT/HYPERACTIVITY DISORDER
     Dosage: 25 MG, DAILY (1/D)
     Route: 065
     Dates: start: 20090301
  2. STRATTERA [Suspect]
     Dosage: 25 MG, 2/D
     Route: 065
  3. STRATTERA [Suspect]
     Dosage: 75 MG, EACH MORNING
     Route: 065
     Dates: start: 20090401
  4. CLONAZEPAM [Concomitant]
     Dosage: UNK, UNKNOWN
     Route: 065

REACTIONS (1)
  - VAGINAL HAEMORRHAGE [None]
